FAERS Safety Report 13144145 (Version 3)
Quarter: 2017Q1

REPORT INFORMATION
  Report Type: Spontaneous
  Country: NL (occurrence: NL)
  Receive Date: 20170124
  Receipt Date: 20170207
  Transmission Date: 20170428
  Serious: Yes (Other)
  Sender: FDA-Public Use
  Company Number: NL-009507513-1701NLD010335

PATIENT
  Age: 60 Year
  Sex: Male

DRUGS (3)
  1. RIBAVIRIN. [Suspect]
     Active Substance: RIBAVIRIN
     Indication: HEPATITIS E
     Dosage: 400 MG, TWICE A DAY
  2. SOFOSBUVIR [Concomitant]
     Active Substance: SOFOSBUVIR
     Dosage: 400 MG, DAY
  3. THERAPY UNSPECIFIED [Suspect]
     Active Substance: UNSPECIFIED INGREDIENT

REACTIONS (4)
  - Pathogen resistance [Unknown]
  - Haematotoxicity [Unknown]
  - Drug ineffective [Unknown]
  - Off label use [Unknown]
